FAERS Safety Report 8806772 (Version 4)
Quarter: 2013Q4

REPORT INFORMATION
  Report Type: Spontaneous
  Country: AR (occurrence: AR)
  Receive Date: 20120925
  Receipt Date: 20131105
  Transmission Date: 20140711
  Serious: Yes (Other)
  Sender: FDA-Public Use
  Company Number: AR-ROCHE-1129925

PATIENT
  Sex: Male

DRUGS (1)
  1. LUCENTIS [Suspect]
     Indication: MACULOPATHY
     Dosage: DOSE: 3 AMPOULES
     Route: 050
     Dates: start: 201205

REACTIONS (4)
  - Maculopathy [Not Recovered/Not Resolved]
  - Blindness [Unknown]
  - Drug ineffective [Unknown]
  - Metamorphopsia [Not Recovered/Not Resolved]
